FAERS Safety Report 12040192 (Version 1)
Quarter: 2016Q1

REPORT INFORMATION
  Report Type: Spontaneous
  Country: AT (occurrence: AT)
  Receive Date: 20160208
  Receipt Date: 20160208
  Transmission Date: 20160526
  Serious: Yes (Death, Other)
  Sender: FDA-Public Use
  Company Number: PHHY2016AT015960

PATIENT
  Age: 63 Year
  Sex: Female

DRUGS (3)
  1. AFINITOR [Suspect]
     Active Substance: EVEROLIMUS
     Indication: BREAST CANCER
     Dosage: 10 MG
     Route: 065
     Dates: start: 201307
  2. AFINITOR [Suspect]
     Active Substance: EVEROLIMUS
     Dosage: 05 MG
     Route: 065
     Dates: start: 201308, end: 201311
  3. EXEMESTAN [Concomitant]
     Active Substance: EXEMESTANE
     Indication: BREAST CANCER
     Route: 065
     Dates: start: 201307

REACTIONS (7)
  - Malignant neoplasm progression [Unknown]
  - Pleural effusion [Unknown]
  - Nausea [Unknown]
  - Pneumonia cytomegaloviral [Unknown]
  - Skin ulcer [Unknown]
  - Death [Fatal]
  - Pneumonia [Unknown]

NARRATIVE: CASE EVENT DATE: 201407
